FAERS Safety Report 6862163-8 (Version None)
Quarter: 2010Q3

REPORT INFORMATION
  Report Type: 
  Country: None (occurrence: None)
  Receive Date: 20100719
  Receipt Date: 20100708
  Transmission Date: 20110219
  Serious: Yes (Death, Hospitalization, Other)
  Sender: FDA-Public Use
  Company Number: CL-123-2010

PATIENT
  Age: 85 Year
  Sex: Female

DRUGS (1)
  1. CIPROFLOXACIN IN DEXTROSE [Suspect]
     Indication: URINARY TRACT INFECTION
     Dosage: 17 BAG UNK INTRAVENOUS
     Route: 042
     Dates: start: 20100404

REACTIONS (3)
  - NO THERAPEUTIC RESPONSE [None]
  - PRODUCT CONTAMINATION [None]
  - VULVOVAGINAL MYCOTIC INFECTION [None]
